FAERS Safety Report 5872533-2 (Version None)
Quarter: 2008Q3

REPORT INFORMATION
  Report Type: 
  Country: None (occurrence: None)
  Receive Date: 20080905
  Receipt Date: 20080827
  Transmission Date: 20090109
  Serious: Yes (Other)
  Sender: FDA-Public Use
  Company Number: US-TYCO HEALTHCARE/MALLINCKRODT-T200801420

PATIENT

DRUGS (8)
  1. OPTIMARK [Suspect]
     Indication: ANGIOGRAM
     Dosage: 120 ML, SINGLE
     Dates: start: 20060419, end: 20060419
  2. CELLCEPT [Concomitant]
     Indication: TRANSPLANT
     Dosage: 250 MG (4), BID
     Dates: start: 20070101
  3. PROGRAF [Concomitant]
     Indication: TRANSPLANT
     Dosage: 5 MG, BID
     Dates: start: 20070101
  4. COUMADIN [Concomitant]
     Indication: ANTICOAGULANT THERAPY
     Dosage: 5 MG, M,T,W,TH,S,S
  5. PREDNISONE TAB [Concomitant]
     Indication: TRANSPLANT
     Dosage: 5 MG, QD
     Dates: start: 19890101
  6. OMEPRAZOLE [Concomitant]
     Indication: STOMACH DISCOMFORT
     Dosage: 20 MG, PRN
  7. VARIUS [Concomitant]
     Indication: HYPERTENSION
     Dates: start: 19890101
  8. METOPROLOL TARTRATE [Concomitant]
     Indication: BLOOD PRESSURE INCREASED
     Dosage: 50 MG, UNK

REACTIONS (1)
  - NEPHROGENIC SYSTEMIC FIBROSIS [None]
